FAERS Safety Report 4507000-1 (Version None)
Quarter: 2004Q4

REPORT INFORMATION
  Report Type: 
  Country: None (occurrence: None)
  Receive Date: 20041025
  Receipt Date: 20040714
  Transmission Date: 20050328
  Serious: Yes (Other)
  Sender: FDA-Public Use
  Company Number: US-JNJFOC-20040706841

PATIENT
  Sex: Female

DRUGS (1)
  1. REMICADE I(INFLIXIMAB, RECOMBINANT) LYOPHILIZED POWDER [Suspect]
     Indication: RHEUMATOID ARTHRITIS
     Dosage: APPROXIMATELY FOUR INFUSIONS GIVEN

REACTIONS (2)
  - PERICARDIAL EFFUSION [None]
  - VASCULITIS [None]
